FAERS Safety Report 24383447 (Version 1)
Quarter: 2024Q4

REPORT INFORMATION
  Report Type: Spontaneous
  Country: ET (occurrence: ET)
  Receive Date: 20241001
  Receipt Date: 20241001
  Transmission Date: 20250114
  Serious: Yes (Life-Threatening, Other)
  Sender: STERISCIENCE PTE
  Company Number: ET-STERISCIENCE B.V.-2024-ST-001513

PATIENT
  Age: 53 Year
  Sex: Male

DRUGS (5)
  1. BUPIVACAINE [Suspect]
     Active Substance: BUPIVACAINE
     Indication: Spinal anaesthesia
     Dosage: 3 MILLILITER, INJECTED AT L3-L4 INTERSPACE
     Route: 065
  2. FENTANYL [Suspect]
     Active Substance: FENTANYL
     Indication: Spinal anaesthesia
     Dosage: 10 MICROGRAM, INJECTED AT L3-L4 INTERSPACE
     Route: 065
  3. FENTANYL [Suspect]
     Active Substance: FENTANYL
     Dosage: 50 MICROGRAM
     Route: 065
  4. DEXTROSE [Concomitant]
     Active Substance: DEXTROSE MONOHYDRATE
     Indication: Bladder irrigation
     Dosage: 5% GLUCOSE [DEXTROSE] IN WATER
     Route: 065
  5. ATROPINE [Concomitant]
     Active Substance: ATROPINE
     Indication: Bradycardia
     Dosage: 0.5 MILLIGRAM
     Route: 042

REACTIONS (1)
  - Acute myocardial infarction [Unknown]
